FAERS Safety Report 16753387 (Version 4)
Quarter: 2019Q4

REPORT INFORMATION
  Report Type: Spontaneous
  Country: JP (occurrence: JP)
  Receive Date: 20190829
  Receipt Date: 20191029
  Transmission Date: 20200122
  Serious: Yes (Hospitalization, Other)
  Sender: FDA-Public Use
  Company Number: JP-BRISTOL-MYERS SQUIBB COMPANY-BMS-2019-084732

PATIENT
  Age: 78 Year
  Sex: Male
  Weight: 56 kg

DRUGS (7)
  1. MAGMITT [Concomitant]
     Active Substance: MAGNESIUM OXIDE
     Indication: CONSTIPATION PROPHYLAXIS
     Dosage: 990 MG, Q8H
     Route: 048
  2. OPDIVO [Suspect]
     Active Substance: NIVOLUMAB
     Indication: NON-SMALL CELL LUNG CANCER RECURRENT
     Dosage: 240 MG
     Route: 041
     Dates: start: 20190328, end: 20190802
  3. CALONAL [Concomitant]
     Active Substance: ACETAMINOPHEN
     Indication: CANCER PAIN
     Dosage: 1600 MG, Q6H
     Route: 048
  4. TRAZENTA [Concomitant]
     Active Substance: LINAGLIPTIN
     Indication: DIABETES MELLITUS
     Dosage: 5 MG, EVERYDAY
     Route: 048
  5. OXYCODONE [Concomitant]
     Active Substance: OXYCODONE
     Indication: CANCER PAIN
     Dosage: 10 MG, Q12H
     Route: 048
     Dates: start: 20190402
  6. LYRICA [Concomitant]
     Active Substance: PREGABALIN
     Indication: SPINAL STENOSIS
     Dosage: 300 MG, Q12H
     Route: 048
  7. BILANOA [Concomitant]
     Active Substance: BILASTINE
     Indication: PRURITUS
     Dosage: 20 MG, EVERYDAY
     Route: 048
     Dates: start: 20190802

REACTIONS (4)
  - Aspiration [Unknown]
  - Cholangitis sclerosing [Recovering/Resolving]
  - Bile duct stenosis [Unknown]
  - Pruritus [Unknown]

NARRATIVE: CASE EVENT DATE: 20190816
